FAERS Safety Report 9778629 (Version 2)
Quarter: 2014Q1

REPORT INFORMATION
  Report Type: Report from Study
  Country: JP (occurrence: JP)
  Receive Date: 20131223
  Receipt Date: 20140131
  Transmission Date: 20141002
  Serious: Yes (Hospitalization)
  Sender: FDA-Public Use
  Company Number: JP-NOVOPROD-395524

PATIENT
  Age: 45 Year
  Sex: Female
  Weight: 76.5 kg

DRUGS (7)
  1. LIRAGLUTIDE FLEXPEN [Suspect]
     Indication: TYPE 2 DIABETES MELLITUS
     Dosage: 0.3 MG
     Route: 058
     Dates: start: 20110908
  2. LIRAGLUTIDE FLEXPEN [Suspect]
     Dosage: 0.6 MG
     Route: 058
     Dates: start: 20110912
  3. LIRAGLUTIDE FLEXPEN [Suspect]
     Dosage: 0.9 MG
     Route: 058
     Dates: start: 20110916, end: 20121205
  4. ACTOS [Concomitant]
     Indication: TYPE 2 DIABETES MELLITUS
     Dosage: 15 MG, QD
     Route: 048
     Dates: start: 20110908
  5. BEZATOL [Concomitant]
     Indication: PRODUCT USED FOR UNKNOWN INDICATION
     Route: 048
  6. MEVALOTIN [Concomitant]
     Indication: PRODUCT USED FOR UNKNOWN INDICATION
     Route: 048
  7. AMARYL [Concomitant]
     Dosage: 1 TAB, QD

REACTIONS (2)
  - Cholelithiasis [Recovered/Resolved]
  - Cholecystitis chronic [Recovered/Resolved]
